FAERS Safety Report 5415751-X (Version None)
Quarter: 2007Q3

REPORT INFORMATION
  Report Type: 
  Country: None (occurrence: None)
  Receive Date: 20070815
  Receipt Date: 20070803
  Transmission Date: 20080115
  Serious: Yes (Hospitalization, Other)
  Sender: FDA-Public Use
  Company Number: FR-PFIZER INC-2007031748

PATIENT
  Sex: Female

DRUGS (7)
  1. LYRICA [Suspect]
     Indication: SCIATICA
     Route: 048
  2. LYRICA [Suspect]
     Indication: NEURALGIA
  3. NAPROXEN [Suspect]
     Indication: RADICULAR PAIN
     Route: 048
  4. NAPROXEN [Suspect]
     Indication: INTERVERTEBRAL DISC PROTRUSION
  5. APRANAX [Concomitant]
  6. NEXIUM [Concomitant]
     Route: 048
  7. CLONAZEPAM [Concomitant]
     Route: 048

REACTIONS (4)
  - INTERVERTEBRAL DISC PROTRUSION [None]
  - OPTIC NEURITIS [None]
  - OPTIC NEURITIS RETROBULBAR [None]
  - VISUAL ACUITY REDUCED [None]
